FAERS Safety Report 4539792-X (Version None)
Quarter: 2004Q4

REPORT INFORMATION
  Report Type: 
  Country: None (occurrence: None)
  Receive Date: 20041223
  Receipt Date: 20041208
  Transmission Date: 20050328
  Serious: Yes (Life-Threatening, Hospitalization)
  Sender: FDA-Public Use
  Company Number: USA041285659

PATIENT
  Age: 5 Year
  Sex: Female

DRUGS (1)
  1. HUMATROPE [Suspect]
     Indication: BODY HEIGHT BELOW NORMAL
     Dosage: 5 MG WEEK
     Dates: start: 20041012

REACTIONS (4)
  - APNOEA [None]
  - CARDIAC ARREST [None]
  - COUGH [None]
  - DYSPNOEA [None]
